FAERS Safety Report 6828388-2 (Version None)
Quarter: 2010Q3

REPORT INFORMATION
  Report Type: 
  Country: None (occurrence: None)
  Receive Date: 20100709
  Receipt Date: 20070329
  Transmission Date: 20110219
  Serious: Yes (Hospitalization, Other)
  Sender: FDA-Public Use
  Company Number: US-PFIZER INC-2007011376

PATIENT
  Sex: Female
  Weight: 93 kg

DRUGS (14)
  1. CHANTIX [Suspect]
     Indication: SMOKING CESSATION THERAPY
     Dates: start: 20070107
  2. NORVASC [Interacting]
     Indication: STENT PLACEMENT
     Dates: start: 20070126
  3. LISINOPRIL [Interacting]
     Indication: STENT PLACEMENT
     Dates: start: 20060901
  4. METOPROLOL [Interacting]
     Indication: STENT PLACEMENT
  5. NICOTINE [Interacting]
     Indication: SMOKING CESSATION THERAPY
  6. ALL OTHER THERAPEUTIC PRODUCTS [Interacting]
     Dates: start: 20070101
  7. TOPROL-XL [Concomitant]
     Dates: start: 20070126
  8. PLAVIX [Concomitant]
  9. LIPITOR [Concomitant]
  10. ACETYLSALICYLIC ACID [Concomitant]
  11. NITROGLYCERIN [Concomitant]
  12. EFFEXOR [Concomitant]
  13. STELAZINE [Concomitant]
  14. RISPERDAL [Concomitant]

REACTIONS (4)
  - CHEST PAIN [None]
  - DRUG INTERACTION [None]
  - FEELING ABNORMAL [None]
  - MALAISE [None]
